FAERS Safety Report 7211851-2 (Version None)
Quarter: 2011Q1

REPORT INFORMATION
  Report Type: 
  Country: None (occurrence: None)
  Receive Date: 20110106
  Receipt Date: 20101227
  Transmission Date: 20110831
  Serious: Yes (Hospitalization, Other)
  Sender: FDA-Public Use
  Company Number: US-BIOGENIDEC-2010BI024312

PATIENT
  Age: 32 Year
  Sex: Male

DRUGS (16)
  1. FOLATE [Concomitant]
     Indication: PRODUCT USED FOR UNKNOWN INDICATION
  2. ASCORBIC ACID [Concomitant]
     Indication: PRODUCT USED FOR UNKNOWN INDICATION
  3. FERROUS SULFATE [Concomitant]
     Indication: PRODUCT USED FOR UNKNOWN INDICATION
  4. TYSABRI [Suspect]
     Indication: MULTIPLE SCLEROSIS
     Route: 042
     Dates: start: 20100312, end: 20100608
  5. IMMUNE GLOBULIN INTRAVENOUS (HUMAN) [Concomitant]
     Indication: MULTIPLE SCLEROSIS
  6. COLACE [Concomitant]
     Indication: PRODUCT USED FOR UNKNOWN INDICATION
  7. SENOKOT [Concomitant]
     Indication: PRODUCT USED FOR UNKNOWN INDICATION
  8. ZANAFLEX [Concomitant]
     Indication: PRODUCT USED FOR UNKNOWN INDICATION
  9. SOLU-MEDROL [Concomitant]
  10. PREVACID [Concomitant]
     Indication: PRODUCT USED FOR UNKNOWN INDICATION
  11. HEPARIN [Concomitant]
     Indication: PRODUCT USED FOR UNKNOWN INDICATION
  12. BACLOFEN [Concomitant]
     Indication: MUSCLE SPASTICITY
  13. PROTONICS [Concomitant]
     Indication: PRODUCT USED FOR UNKNOWN INDICATION
  14. VESICARE [Concomitant]
     Indication: PRODUCT USED FOR UNKNOWN INDICATION
  15. LISINOPRIL [Concomitant]
     Indication: PRODUCT USED FOR UNKNOWN INDICATION
  16. AMBIEN [Concomitant]
     Indication: PRODUCT USED FOR UNKNOWN INDICATION

REACTIONS (13)
  - TOXICITY TO VARIOUS AGENTS [None]
  - BLINDNESS TRANSIENT [None]
  - METABOLIC ENCEPHALOPATHY [None]
  - CONVULSION [None]
  - STAPHYLOCOCCAL SEPSIS [None]
  - HEADACHE [None]
  - ABSCESS LIMB [None]
  - SUDDEN VISUAL LOSS [None]
  - MULTIPLE SCLEROSIS [None]
  - DRUG INTOLERANCE [None]
  - MULTIPLE SCLEROSIS RELAPSE [None]
  - DRUG INEFFECTIVE [None]
  - RENAL FAILURE [None]
